FAERS Safety Report 14239968 (Version 1)
Quarter: 2017Q4

REPORT INFORMATION
  Report Type: Spontaneous
  Country: US (occurrence: US)
  Receive Date: 20171128
  Receipt Date: 20171128
  Transmission Date: 20180321
  Serious: Yes (Death)
  Sender: FDA-Public Use
  Company Number: None

PATIENT
  Age: 64 Year
  Sex: Female
  Weight: 42.75 kg

DRUGS (10)
  1. IBRANCE [Suspect]
     Active Substance: PALBOCICLIB
     Indication: BREAST CANCER
     Route: 048
     Dates: start: 20171020, end: 20171128
  2. DELT ASONE [Concomitant]
  3. COREG [Concomitant]
     Active Substance: CARVEDILOL
  4. MARINOL [Concomitant]
     Active Substance: DRONABINOL
  5. AROMASIN [Concomitant]
     Active Substance: EXEMESTANE
  6. REMERON [Concomitant]
     Active Substance: MIRTAZAPINE
  7. ALBUTEROL SULFATE. [Concomitant]
     Active Substance: ALBUTEROL SULFATE
  8. XANAX [Concomitant]
     Active Substance: ALPRAZOLAM
  9. COLACE [Concomitant]
     Active Substance: DOCUSATE SODIUM
  10. PRINIVIL [Concomitant]
     Active Substance: LISINOPRIL

REACTIONS (1)
  - Disease progression [None]
